FAERS Safety Report 23441479 (Version 1)
Quarter: 2024Q1

REPORT INFORMATION
  Report Type: Other
  Country: CN (occurrence: None)
  Receive Date: 20240125
  Receipt Date: 20240125
  Transmission Date: 20240409
  Serious: Yes (Other)
  Sender: FDA-Public Use
  Company Number: CN-ROCHE-3494669

PATIENT

DRUGS (9)
  1. BEVACIZUMAB [Suspect]
     Active Substance: BEVACIZUMAB
     Indication: Non-small cell lung cancer
     Route: 042
  2. TORIPALIMAB [Concomitant]
     Active Substance: TORIPALIMAB
  3. CISPLATIN [Concomitant]
     Active Substance: CISPLATIN
  4. CARBOPLATIN [Concomitant]
     Active Substance: CARBOPLATIN
     Dosage: AUC 6 MG/ML. MIN
  5. PEMETREXED [Concomitant]
     Active Substance: PEMETREXED
  6. DOCETAXEL [Concomitant]
     Active Substance: DOCETAXEL\DOCETAXEL ANHYDROUS
  7. PACLITAXEL [Concomitant]
     Active Substance: PACLITAXEL
  8. PACLITAXEL [Concomitant]
     Active Substance: PACLITAXEL
  9. CATEQUENTINIB [Concomitant]
     Active Substance: CATEQUENTINIB
     Route: 048

REACTIONS (12)
  - Neutropenia [Unknown]
  - Leukopenia [Unknown]
  - Thrombocytopenia [Unknown]
  - Myelosuppression [Unknown]
  - Rash [Unknown]
  - Nausea [Unknown]
  - Vomiting [Unknown]
  - Proteinuria [Unknown]
  - Liver injury [Unknown]
  - Hypertension [Unknown]
  - Venous thrombosis [Unknown]
  - Diarrhoea [Unknown]
